FAERS Safety Report 16106371 (Version 1)
Quarter: 2019Q2

REPORT INFORMATION
  Report Type: Spontaneous
  Country: US (occurrence: US)
  Receive Date: 20190321
  Receipt Date: 20190321
  Transmission Date: 20190711
  Serious: No
  Sender: FDA-Public Use
  Company Number: None

PATIENT
  Sex: Female

DRUGS (2)
  1. SA LOTION FOR ROUGH AND BUMPY SKIN (COSMETICS) [Suspect]
     Active Substance: COSMETICS
  2. SALICYLIC ACID. [Suspect]
     Active Substance: SALICYLIC ACID

REACTIONS (1)
  - Product label issue [None]
